FAERS Safety Report 7311965-2 (Version None)
Quarter: 2011Q1

REPORT INFORMATION
  Report Type: 
  Country: None (occurrence: None)
  Receive Date: 20110224
  Receipt Date: 20110215
  Transmission Date: 20110831
  Serious: Yes (Hospitalization)
  Sender: FDA-Public Use
  Company Number: BR-ROCHE-760089

PATIENT
  Sex: Female
  Weight: 74 kg

DRUGS (7)
  1. GLIBENCLAMIDE [Concomitant]
     Indication: DIABETES MELLITUS
  2. METFORMIN [Concomitant]
     Indication: DIABETES MELLITUS
  3. TOCILIZUMAB [Suspect]
     Indication: RHEUMATOID ARTHRITIS
     Dosage: DOSE: 8 MG/ML; FORM: INFUSION
     Route: 065
     Dates: start: 20100228, end: 20101101
  4. METHOTREXATE [Concomitant]
  5. FOLIC ACID [Concomitant]
  6. PREDNISONE [Concomitant]
  7. SIMVASTATIN [Concomitant]

REACTIONS (4)
  - ARTHROPATHY [None]
  - RHEUMATOID ARTHRITIS [None]
  - DRUG INEFFECTIVE [None]
  - SKIN DISCOLOURATION [None]
